FAERS Safety Report 5505901-9 (Version None)
Quarter: 2007Q4

REPORT INFORMATION
  Report Type: 
  Country: None (occurrence: None)
  Receive Date: 20071102
  Receipt Date: 20071023
  Transmission Date: 20080405
  Serious: Yes (Other)
  Sender: FDA-Public Use
  Company Number: US-PFIZER INC-2007090376

PATIENT
  Sex: Male
  Weight: 68.181 kg

DRUGS (1)
  1. CHANTIX [Suspect]

REACTIONS (3)
  - CYSTITIS [None]
  - DYSURIA [None]
  - POLLAKIURIA [None]
